FAERS Safety Report 8137553-6 (Version None)
Quarter: 2012Q1

REPORT INFORMATION
  Report Type: 
  Country: None (occurrence: None)
  Receive Date: 20120103
  Receipt Date: 20110909
  Transmission Date: 20120608
  Serious: No
  Sender: FDA-Public Use
  Company Number: AE-2011-001404

PATIENT
  Age: 49 Year
  Sex: Male
  Weight: 102.0593 kg

DRUGS (10)
  1. TAZTIA (DILTIAZEM HYDROCHLORIDE) [Concomitant]
  2. INCIVEK [Suspect]
     Dosage: 2250 MG (750 MG, 1 IN 8 HR), ORAL
     Route: 048
     Dates: start: 20110701, end: 20110906
  3. RIBAVIRIN [Concomitant]
  4. LOSARTAN POTASSIUM [Concomitant]
  5. HYDROCHLOROTHIAZIDE [Concomitant]
  6. HYDRALAZINE HCL [Concomitant]
  7. CARVEDILOL [Concomitant]
  8. LISINOPRIL [Concomitant]
  9. DIATEK (ANTIHYPERTENSIVES) [Concomitant]
  10. PEGASYS [Concomitant]

REACTIONS (2)
  - PRURITUS GENERALISED [None]
  - DRUG DOSE OMISSION [None]
